FAERS Safety Report 14610129 (Version 2)
Quarter: 2018Q1

REPORT INFORMATION
  Report Type: Spontaneous
  Country: JP (occurrence: JP)
  Receive Date: 20180307
  Receipt Date: 20180314
  Transmission Date: 20180509
  Serious: Yes (Hospitalization)
  Sender: FDA-Public Use
  Company Number: PHJP2018JP005043

PATIENT
  Age: 40 Year
  Sex: Male

DRUGS (1)
  1. GLIVEC [Suspect]
     Active Substance: IMATINIB MESYLATE
     Indication: CHRONIC MYELOID LEUKAEMIA
     Dosage: 400 MG, UNK
     Route: 048
     Dates: start: 200210

REACTIONS (4)
  - Duodenal polyp [Unknown]
  - Large intestine polyp [Unknown]
  - Gastric polyps [Unknown]
  - Duodenal neoplasm [Unknown]

NARRATIVE: CASE EVENT DATE: 200803
